FAERS Safety Report 18397250 (Version 1)
Quarter: 2020Q4

REPORT INFORMATION
  Report Type: Spontaneous
  Country: US (occurrence: US)
  Receive Date: 20201019
  Receipt Date: 20201019
  Transmission Date: 20210114
  Serious: Yes (Other)
  Sender: FDA-Public Use
  Company Number: US-CIPLA LTD.-2020US07400

PATIENT

DRUGS (16)
  1. QUETIAPINE. [Suspect]
     Active Substance: QUETIAPINE
     Indication: AGGRESSION
     Dosage: UNK
     Route: 065
  2. LORAZEPAM. [Suspect]
     Active Substance: LORAZEPAM
     Indication: AGGRESSION
     Dosage: UNK
     Route: 061
  3. TRAZODONE [Suspect]
     Active Substance: TRAZODONE HYDROCHLORIDE
     Indication: AGGRESSION
     Dosage: UNK
     Route: 065
  4. TRAZODONE [Suspect]
     Active Substance: TRAZODONE HYDROCHLORIDE
     Indication: DEMENTIA
  5. QUETIAPINE. [Suspect]
     Active Substance: QUETIAPINE
     Indication: DEMENTIA
  6. LORAZEPAM. [Suspect]
     Active Substance: LORAZEPAM
     Indication: DEMENTIA
  7. PRAMIPEXOLE. [Concomitant]
     Active Substance: PRAMIPEXOLE
     Indication: PRODUCT USED FOR UNKNOWN INDICATION
     Dosage: UNK
     Route: 065
  8. SIMVASTATIN. [Concomitant]
     Active Substance: SIMVASTATIN
     Indication: PRODUCT USED FOR UNKNOWN INDICATION
     Dosage: UNK
     Route: 065
  9. DONEPEZIL. [Suspect]
     Active Substance: DONEPEZIL
     Indication: DEMENTIA
  10. MEMANTINE. [Suspect]
     Active Substance: MEMANTINE
     Indication: DEMENTIA
  11. DONEPEZIL. [Suspect]
     Active Substance: DONEPEZIL
     Indication: AGGRESSION
     Dosage: UNK
     Route: 065
  12. MEMANTINE. [Suspect]
     Active Substance: MEMANTINE
     Indication: AGGRESSION
     Dosage: UNK
     Route: 065
  13. SERTRALINE [Suspect]
     Active Substance: SERTRALINE HYDROCHLORIDE
     Indication: AGGRESSION
     Dosage: UNK
     Route: 065
  14. SERTRALINE [Suspect]
     Active Substance: SERTRALINE HYDROCHLORIDE
     Indication: DEMENTIA
  15. THIAMINE. [Concomitant]
     Active Substance: THIAMINE
     Indication: PRODUCT USED FOR UNKNOWN INDICATION
     Dosage: UNK
     Route: 065
  16. ACETAMINOPHEN. [Concomitant]
     Active Substance: ACETAMINOPHEN
     Indication: PRODUCT USED FOR UNKNOWN INDICATION
     Dosage: UNK
     Route: 065

REACTIONS (2)
  - Drug ineffective [Unknown]
  - Drug intolerance [Unknown]
